FAERS Safety Report 4339351-8 (Version None)
Quarter: 2004Q2

REPORT INFORMATION
  Report Type: 
  Country: None (occurrence: None)
  Receive Date: 20040412
  Receipt Date: 20040406
  Transmission Date: 20050107
  Serious: Yes (Life-Threatening)
  Sender: FDA-Public Use
  Company Number: 2004UW00224

PATIENT
  Age: 4 Month
  Sex: Male
  Weight: 6.9 kg

DRUGS (5)
  1. DIPRIVAN [Suspect]
     Indication: INDUCTION OF ANAESTHESIA
     Dosage: 10 MG DAILY IV
     Route: 042
     Dates: start: 20031119, end: 20031119
  2. FENTANYL [Concomitant]
  3. MIVACURIUM [Concomitant]
  4. PHENOBARBITAL TAB [Concomitant]
  5. ZONISAMIDE [Concomitant]

REACTIONS (2)
  - BRADYCARDIA [None]
  - METABOLIC ACIDOSIS [None]
